FAERS Safety Report 7510664-1 (Version None)
Quarter: 2011Q2

REPORT INFORMATION
  Report Type: 
  Country: None (occurrence: None)
  Receive Date: 20110530
  Receipt Date: 20110516
  Transmission Date: 20111010
  Serious: Yes (Other)
  Sender: FDA-Public Use
  Company Number: PHHY2011MX42111

PATIENT
  Age: 78 Year
  Sex: Female

DRUGS (1)
  1. ZOLEDRONIC ACID [Suspect]
     Indication: METASTASES TO BONE
     Dosage: 4 MG, QMO
     Route: 042

REACTIONS (9)
  - PAIN [None]
  - OSTEOMYELITIS [None]
  - OSTEONECROSIS OF JAW [None]
  - SENSITIVITY OF TEETH [None]
  - PURULENCE [None]
  - EXPOSED BONE IN JAW [None]
  - BURNING SENSATION [None]
  - OSTEITIS [None]
  - DENTAL FISTULA [None]
